FAERS Safety Report 25336280 (Version 2)
Quarter: 2025Q2

REPORT INFORMATION
  Report Type: Spontaneous
  Country: US (occurrence: US)
  Receive Date: 20250520
  Receipt Date: 20250527
  Transmission Date: 20250717
  Serious: Yes (Hospitalization)
  Sender: TEVA
  Company Number: US-TEVA-VS-3331569

PATIENT
  Age: 38 Year
  Sex: Male

DRUGS (2)
  1. LISINOPRIL [Interacting]
     Active Substance: LISINOPRIL
     Indication: Hypertension
     Route: 065
  2. EVEROLIMUS [Interacting]
     Active Substance: EVEROLIMUS
     Indication: Immunosuppressant drug therapy
     Route: 065

REACTIONS (2)
  - Angioedema [Recovered/Resolved]
  - Drug interaction [Unknown]
